FAERS Safety Report 9018100 (Version 1)
Quarter: 2013Q1

REPORT INFORMATION
  Report Type: Spontaneous
  Country: MX (occurrence: MX)
  Receive Date: 20130117
  Receipt Date: 20130117
  Transmission Date: 20140127
  Serious: Yes (Death)
  Sender: FDA-Public Use
  Company Number: MX-B.I. PHARMACEUTICALS,INC./RIDGEFIELD-2013-MX-00009MX

PATIENT
  Age: 9 Year
  Sex: Male

DRUGS (1)
  1. COMBIVENT [Suspect]
     Dosage: ONE AMPOULE
     Route: 042

REACTIONS (1)
  - Death [Fatal]
